FAERS Safety Report 6227304-4 (Version None)
Quarter: 2009Q2

REPORT INFORMATION
  Report Type: 
  Country: None (occurrence: None)
  Receive Date: 20090612
  Receipt Date: 20090604
  Transmission Date: 20091009
  Serious: Yes (Other)
  Sender: FDA-Public Use
  Company Number: US-ABBOTT-09P-163-0579148-00

PATIENT
  Sex: Female

DRUGS (2)
  1. DEPAKOTE [Suspect]
     Indication: BIPOLAR DISORDER
     Route: 048
  2. ABILIFY [Concomitant]
     Indication: BIPOLAR DISORDER

REACTIONS (1)
  - RENAL FAILURE [None]
